FAERS Safety Report 12059587 (Version 1)
Quarter: 2016Q1

REPORT INFORMATION
  Report Type: Spontaneous
  Country: AU (occurrence: AU)
  Receive Date: 20160210
  Receipt Date: 20160210
  Transmission Date: 20160526
  Serious: Yes (Other)
  Sender: FDA-Public Use
  Company Number: AU-MYLANLABS-2016M1006005

PATIENT

DRUGS (1)
  1. PROGOUT 300 [Suspect]
     Active Substance: ALLOPURINOL
     Indication: GOUT
     Dosage: UNK
     Dates: start: 1980

REACTIONS (4)
  - Eye inflammation [Recovered/Resolved]
  - Nephrolithiasis [Not Recovered/Not Resolved]
  - Ankylosing spondylitis [Not Recovered/Not Resolved]
  - Blood calcium increased [Unknown]

NARRATIVE: CASE EVENT DATE: 2012
